FAERS Safety Report 17491130 (Version 1)
Quarter: 2020Q1

REPORT INFORMATION
  Report Type: Report from Study
  Country: DE (occurrence: DE)
  Receive Date: 20200304
  Receipt Date: 20200304
  Transmission Date: 20200409
  Serious: Yes (Hospitalization)
  Sender: FDA-Public Use
  Company Number: DE-ROCHE-1291269

PATIENT
  Age: 65 Year
  Sex: Male
  Weight: 103 kg

DRUGS (3)
  1. IRINOTECAN [Suspect]
     Active Substance: IRINOTECAN
     Indication: COLORECTAL CANCER METASTATIC
     Dosage: DATE OF RECENT DOSE (422 MG) PRIOR TO MUCOSITIS: 10/OCT/2013
     Route: 042
     Dates: start: 20130919, end: 20131121
  2. CAPECITABINE. [Suspect]
     Active Substance: CAPECITABINE
     Indication: COLORECTAL CANCER METASTATIC
     Route: 048
     Dates: start: 20130919, end: 20131121
  3. BEVACIZUMAB. [Suspect]
     Active Substance: BEVACIZUMAB
     Indication: COLORECTAL CANCER METASTATIC
     Dosage: DATE OF RECENT DOSE (773 MG) PRIOR TO MUCOSITIS: 10/OCT/2013
     Route: 042
     Dates: start: 20130919

REACTIONS (2)
  - Mucosal inflammation [Unknown]
  - Pancytopenia [Recovered/Resolved]

NARRATIVE: CASE EVENT DATE: 20131017
